FAERS Safety Report 19195877 (Version 1)
Quarter: 2021Q2

REPORT INFORMATION
  Report Type: Spontaneous
  Country: US (occurrence: US)
  Receive Date: 20210429
  Receipt Date: 20210429
  Transmission Date: 20210717
  Serious: No
  Sender: FDA-Public Use
  Company Number: US-SA-2021SA139752

PATIENT
  Sex: Female

DRUGS (1)
  1. DUPIXENT [Suspect]
     Active Substance: DUPILUMAB
     Indication: DERMATITIS ATOPIC
     Dosage: UNK
     Route: 058
     Dates: start: 20200430

REACTIONS (11)
  - Eye pain [Unknown]
  - Eye pruritus [Unknown]
  - Lacrimation increased [Unknown]
  - Condition aggravated [Unknown]
  - Eye irritation [Unknown]
  - Eyelid pain [Unknown]
  - Eyelid cyst [Unknown]
  - Photophobia [Unknown]
  - Fatigue [Unknown]
  - Headache [Unknown]
  - Skin texture abnormal [Unknown]
